FAERS Safety Report 6506488-4 (Version None)
Quarter: 2009Q4

REPORT INFORMATION
  Report Type: 
  Country: None (occurrence: None)
  Receive Date: 20091221
  Receipt Date: 20091215
  Transmission Date: 20100525
  Serious: Yes (Death)
  Sender: FDA-Public Use
  Company Number: US-CUBIST-2009S1000557

PATIENT
  Age: 72 Year
  Sex: Female
  Weight: 72.6 kg

DRUGS (13)
  1. CUBICIN [Suspect]
     Indication: BACTERAEMIA
  2. CUBICIN [Suspect]
     Indication: STAPHYLOCOCCAL BACTERAEMIA
  3. CUBICIN [Suspect]
     Indication: ENTEROCOCCAL BACTERAEMIA
  4. CUBICIN [Suspect]
     Indication: OFF LABEL USE
  5. CUBICIN [Suspect]
  6. CUBICIN [Suspect]
  7. CUBICIN [Suspect]
  8. CUBICIN [Suspect]
  9. LINEZOLID [Concomitant]
     Indication: DRUG USE FOR UNKNOWN INDICATION
  10. VANCOMYCIN [Concomitant]
     Indication: DRUG USE FOR UNKNOWN INDICATION
  11. VANCOMYCIN [Concomitant]
  12. GENTAMICIN [Concomitant]
     Indication: DRUG USE FOR UNKNOWN INDICATION
  13. RIFAMPIN [Concomitant]
     Indication: DRUG USE FOR UNKNOWN INDICATION

REACTIONS (1)
  - SEPSIS [None]
